FAERS Safety Report 5422953-5 (Version None)
Quarter: 2007Q3

REPORT INFORMATION
  Report Type: 
  Country: None (occurrence: None)
  Receive Date: 20070820
  Receipt Date: 20070807
  Transmission Date: 20080115
  Serious: Yes (Hospitalization)
  Sender: FDA-Public Use
  Company Number: 236181K07USA

PATIENT
  Age: 35 Year
  Sex: Male

DRUGS (3)
  1. REBIF [Suspect]
     Indication: MULTIPLE SCLEROSIS
     Dosage: 44 MCG, 3 IN 1 WEEKS, SUBCUTANEOUS
     Route: 058
     Dates: start: 20060410
  2. TYLENOL                   ( COTYLENOL ) [Concomitant]
  3. INSULIN PUMP                (INSULIN ) [Concomitant]

REACTIONS (8)
  - ADDISON'S DISEASE [None]
  - DEAFNESS TRANSITORY [None]
  - DEAFNESS UNILATERAL [None]
  - EAR HAEMORRHAGE [None]
  - FALL [None]
  - FATIGUE [None]
  - LOSS OF CONSCIOUSNESS [None]
  - SKULL FRACTURE [None]
